FAERS Safety Report 9338633 (Version 1)
Quarter: 2013Q2

REPORT INFORMATION
  Report Type: Spontaneous
  Country: US (occurrence: US)
  Receive Date: 20130610
  Receipt Date: 20130610
  Transmission Date: 20140414
  Serious: No
  Sender: FDA-Public Use
  Company Number: US-BRISTOL-MYERS SQUIBB COMPANY-16533739

PATIENT
  Sex: Male

DRUGS (1)
  1. SUSTIVA [Suspect]

REACTIONS (1)
  - Drug screen false positive [Unknown]
